FAERS Safety Report 9204132 (Version 6)
Quarter: 2013Q3

REPORT INFORMATION
  Report Type: Report from Study
  Country: CN (occurrence: CN)
  Receive Date: 20130402
  Receipt Date: 20130906
  Transmission Date: 20140515
  Serious: Yes (Life-Threatening, Hospitalization, Other)
  Sender: FDA-Public Use
  Company Number: CN-SANOFI-AVENTIS-2013SA034541

PATIENT
  Age: 70 Year
  Sex: Male
  Weight: 53 kg

DRUGS (2)
  1. CABAZITAXEL [Suspect]
     Indication: PROSTATE CANCER METASTATIC
     Route: 042
     Dates: start: 20130321, end: 20130321
  2. PREDNISONE [Suspect]
     Indication: PROSTATE CANCER METASTATIC
     Route: 048
     Dates: start: 20130321, end: 20130327

REACTIONS (3)
  - Shock [Recovered/Resolved]
  - Cardiac failure [Recovered/Resolved with Sequelae]
  - Febrile neutropenia [Recovered/Resolved]
